FAERS Safety Report 7595715-0 (Version None)
Quarter: 2011Q3

REPORT INFORMATION
  Report Type: 
  Country: None (occurrence: None)
  Receive Date: 20110707
  Receipt Date: 20110629
  Transmission Date: 20111222
  Serious: Yes (Other)
  Sender: FDA-Public Use
  Company Number: GB-PFIZER INC-2011146098

PATIENT
  Sex: Female
  Weight: 65 kg

DRUGS (6)
  1. SYNTOCINON [Concomitant]
     Indication: GENERAL ANAESTHESIA
     Dosage: 5 IU, UNK
     Route: 042
     Dates: start: 20110616
  2. PARACETAMOL [Concomitant]
     Indication: GENERAL ANAESTHESIA
     Dosage: 1000 MG, UNK
     Route: 042
     Dates: start: 20110616
  3. DEXAMETHASONE [Concomitant]
     Indication: GENERAL ANAESTHESIA
     Dosage: 66 MG, UNK
     Route: 042
     Dates: start: 20110616
  4. ONDANSERTRON HYDROCHLORIDE [Suspect]
     Indication: PROPHYLAXIS OF NAUSEA AND VOMITING
     Dosage: 4 MG, UNK
     Route: 042
     Dates: start: 20110616
  5. FENTANYL [Concomitant]
     Dosage: 75 UG, UNK
     Route: 042
     Dates: start: 20110616
  6. PROPOFOL [Concomitant]
     Indication: GENERAL ANAESTHESIA
     Dosage: UNK
     Route: 042
     Dates: start: 20110616

REACTIONS (3)
  - EXTRAPYRAMIDAL DISORDER [None]
  - MUSCLE TWITCHING [None]
  - DYSTONIA [None]
